FAERS Safety Report 20696575 (Version 1)
Quarter: 2022Q2

REPORT INFORMATION
  Report Type: Spontaneous
  Country: DE (occurrence: DE)
  Receive Date: 20220411
  Receipt Date: 20220411
  Transmission Date: 20220721
  Serious: Yes (Other)
  Sender: FDA-Public Use
  Company Number: DE-JNJFOC-20220405215

PATIENT
  Sex: Male

DRUGS (2)
  1. SPRAVATO [Suspect]
     Active Substance: ESKETAMINE
     Indication: Depression
  2. TRANYLCYPROMINE SULFATE [Suspect]
     Active Substance: TRANYLCYPROMINE SULFATE
     Indication: Product used for unknown indication
     Route: 065

REACTIONS (1)
  - Renal cell carcinoma [Unknown]
